FAERS Safety Report 6636463-0 (Version None)
Quarter: 2010Q1

REPORT INFORMATION
  Report Type: 
  Country: None (occurrence: None)
  Receive Date: 20100316
  Receipt Date: 20100304
  Transmission Date: 20100710
  Serious: Yes (Other)
  Sender: FDA-Public Use
  Company Number: JP-PFIZER INC-2010029752

PATIENT
  Sex: Female

DRUGS (2)
  1. SALAZOPYRIN [Suspect]
     Dosage: 6 TABLETS/DAY
     Route: 050
  2. SALAZOPYRIN [Suspect]
     Dosage: 12 TABLETS/DAY
     Route: 050

REACTIONS (1)
  - ABORTION SPONTANEOUS [None]
